FAERS Safety Report 24344690 (Version 1)
Quarter: 2024Q3

REPORT INFORMATION
  Report Type: Spontaneous
  Country: US (occurrence: US)
  Receive Date: 20240920
  Receipt Date: 20240920
  Transmission Date: 20241017
  Serious: No
  Sender: Alora Pharma
  Company Number: US-ACELLA PHARMACEUTICALS, LLC-2024ALO00342

PATIENT
  Age: 23 Year
  Sex: Female
  Weight: 77.098 kg

DRUGS (4)
  1. METHYLPHENIDATE HYDROCHLORIDE [Suspect]
     Active Substance: METHYLPHENIDATE HYDROCHLORIDE
     Indication: Attention deficit hyperactivity disorder
     Dosage: 27 MG, 1X/DAY
     Route: 048
     Dates: end: 202407
  2. METHYLPHENIDATE HYDROCHLORIDE [Suspect]
     Active Substance: METHYLPHENIDATE HYDROCHLORIDE
     Dosage: 27 MG, 1X/DAY
     Route: 048
     Dates: start: 20240715, end: 20240716
  3. ESTRADIOL VALERATE [Concomitant]
     Active Substance: ESTRADIOL VALERATE
  4. PROGESTERONE [Concomitant]
     Active Substance: PROGESTERONE

REACTIONS (7)
  - Dry throat [Recovered/Resolved]
  - Nausea [Recovered/Resolved]
  - Headache [Recovered/Resolved]
  - Hyperhidrosis [Recovered/Resolved]
  - Decreased appetite [Recovered/Resolved]
  - Insomnia [Recovered/Resolved]
  - Product quality issue [Recovered/Resolved]

NARRATIVE: CASE EVENT DATE: 20240715
